FAERS Safety Report 4974686-7 (Version None)
Quarter: 2006Q2

REPORT INFORMATION
  Report Type: 
  Country: None (occurrence: None)
  Receive Date: 20060417
  Receipt Date: 20050112
  Transmission Date: 20061013
  Serious: Yes (Hospitalization)
  Sender: FDA-Public Use
  Company Number: US-MERCK-0501USA01929

PATIENT
  Age: 68 Year
  Sex: Female
  Weight: 102 kg

DRUGS (1)
  1. VIOXX [Suspect]
     Indication: ARTHRITIS
     Route: 048
     Dates: start: 20010101, end: 20030101

REACTIONS (4)
  - ANGINA PECTORIS [None]
  - CARDIAC DISORDER [None]
  - MITRAL VALVE REPLACEMENT [None]
  - MYOCARDIAL INFARCTION [None]
